FAERS Safety Report 5726980-X (Version None)
Quarter: 2008Q2

REPORT INFORMATION
  Report Type: 
  Country: None (occurrence: None)
  Receive Date: 20080503
  Receipt Date: 20070703
  Transmission Date: 20081010
  Serious: Yes (Hospitalization)
  Sender: FDA-Public Use
  Company Number: US-BRISTOL-MYERS SQUIBB COMPANY-14171425

PATIENT
  Age: 66 Year
  Sex: Male
  Weight: 51 kg

DRUGS (5)
  1. CETUXIMAB [Suspect]
     Indication: NON-SMALL CELL LUNG CANCER METASTATIC
     Route: 042
     Dates: start: 20070530, end: 20070530
  2. DOCETAXEL [Suspect]
     Indication: NON-SMALL CELL LUNG CANCER
     Route: 042
     Dates: start: 20070530, end: 20070530
  3. LISINOPRIL [Concomitant]
     Indication: ARRHYTHMIA
  4. METOPROLOL TARTRATE [Concomitant]
     Indication: ARRHYTHMIA
  5. FINASTERIDE [Concomitant]
     Indication: BENIGN PROSTATIC HYPERPLASIA
     Route: 048

REACTIONS (2)
  - DEHYDRATION [None]
  - HYPOTENSION [None]
